FAERS Safety Report 16471449 (Version 1)
Quarter: 2019Q2

REPORT INFORMATION
  Report Type: Spontaneous
  Country: MX (occurrence: MX)
  Receive Date: 20190624
  Receipt Date: 20190624
  Transmission Date: 20190711
  Serious: Yes (Other)
  Sender: FDA-Public Use
  Company Number: MX-ANIPHARMA-2019-MX-000023

PATIENT
  Age: 59 Year
  Sex: Female

DRUGS (6)
  1. ATACAND [Suspect]
     Active Substance: CANDESARTAN CILEXETIL
     Indication: HYPERTENSION
     Dosage: 16 MG BID
     Route: 048
     Dates: start: 20181213
  2. LACTOBACILLUS ACIDOPHILUS [Concomitant]
     Active Substance: LACTOBACILLUS ACIDOPHILUS
     Dosage: UNK
     Route: 065
  3. NO MATCH [Concomitant]
     Active Substance: UNSPECIFIED INGREDIENT
     Dosage: UNK
     Route: 065
  4. CANDESARTAN CILEXETIL AND HYDROCHLOROTHIAZIDE [Suspect]
     Active Substance: CANDESARTAN CILEXETIL\HYDROCHLOROTHIAZIDE
     Indication: HYPERTENSION
     Dosage: 16 / 12.5 MG TWO TIMES A DAY
     Route: 048
     Dates: start: 1994, end: 20181212
  5. ANTIBIOTICS [Concomitant]
     Active Substance: UNSPECIFIED INGREDIENT
     Dosage: UNK
     Route: 048
     Dates: start: 20190514, end: 20190522
  6. GLIMETAL [Concomitant]
     Dosage: 2/850 MG 1 TABLET DAILY
     Route: 065

REACTIONS (3)
  - Diabetes mellitus [Unknown]
  - Blood uric acid abnormal [Recovered/Resolved]
  - Salmonellosis [Recovered/Resolved]

NARRATIVE: CASE EVENT DATE: 2012
